FAERS Safety Report 16070855 (Version 4)
Quarter: 2020Q2

REPORT INFORMATION
  Report Type: Spontaneous
  Country: US (occurrence: US)
  Receive Date: 20190314
  Receipt Date: 20200616
  Transmission Date: 20200713
  Serious: No
  Sender: FDA-Public Use
  Company Number: US-BIOGEN-2019BI00709045

PATIENT
  Age: 48 Year
  Sex: Female

DRUGS (1)
  1. TECFIDERA [Suspect]
     Active Substance: DIMETHYL FUMARATE
     Indication: MULTIPLE SCLEROSIS
     Dosage: MAINTENANCE DOSE
     Route: 048
     Dates: start: 201603

REACTIONS (24)
  - Stress [Unknown]
  - Pruritus [Not Recovered/Not Resolved]
  - Transferrin saturation increased [Unknown]
  - Blood creatinine decreased [Unknown]
  - Prothrombin time prolonged [Unknown]
  - Ceruloplasmin decreased [Unknown]
  - Blood erythropoietin decreased [Unknown]
  - pH urine increased [Unknown]
  - Mean cell haemoglobin increased [Unknown]
  - Flushing [Not Recovered/Not Resolved]
  - Blood glucose increased [Unknown]
  - International normalised ratio increased [Unknown]
  - Alanine aminotransferase increased [Unknown]
  - Neutrophil count increased [Unknown]
  - Serum ferritin increased [Unknown]
  - Monocyte percentage increased [Unknown]
  - Lymphocyte percentage decreased [Unknown]
  - Product dose omission [Unknown]
  - Blood calcium increased [Unknown]
  - Eosinophil percentage increased [Unknown]
  - Mean cell volume increased [Unknown]
  - Aspartate aminotransferase increased [Unknown]
  - Neutrophil percentage increased [Unknown]
  - Antinuclear antibody increased [Unknown]

NARRATIVE: CASE EVENT DATE: 20190528
